FAERS Safety Report 7336049-9 (Version None)
Quarter: 2011Q1

REPORT INFORMATION
  Report Type: 
  Country: None (occurrence: None)
  Receive Date: 20110307
  Receipt Date: 20110218
  Transmission Date: 20110831
  Serious: No
  Sender: FDA-Public Use
  Company Number: US-B.I. PHARMACEUTICALS,INC./RIDGEFIELD-2011-BP-06204BP

PATIENT
  Sex: Male

DRUGS (5)
  1. CRESTOR [Concomitant]
     Dosage: 20 MG
     Route: 048
  2. NIASPAN [Concomitant]
     Dosage: 500 MG
     Route: 048
  3. METOPROLOL [Concomitant]
     Dosage: 100 MG
     Route: 048
  4. VITAMIN-MINERAL COMPOUND TAB [Concomitant]
     Dosage: 500 MG
     Route: 048
  5. PRADAXA [Suspect]
     Indication: ATRIAL FIBRILLATION
     Dosage: 300 MG
     Route: 048
     Dates: start: 20101223

REACTIONS (1)
  - CHROMATURIA [None]
